FAERS Safety Report 6187370-1 (Version None)
Quarter: 2009Q2

REPORT INFORMATION
  Report Type: 
  Country: None (occurrence: None)
  Receive Date: 20090512
  Receipt Date: 20090508
  Transmission Date: 20091009
  Serious: Yes (Hospitalization)
  Sender: FDA-Public Use
  Company Number: A0783558A

PATIENT

DRUGS (2)
  1. MELPHALAN [Suspect]
     Indication: MULTIPLE MYELOMA
  2. VELCADE [Suspect]
     Indication: MULTIPLE MYELOMA

REACTIONS (1)
  - TREMOR [None]
